FAERS Safety Report 7702964-7 (Version None)
Quarter: 2011Q3

REPORT INFORMATION
  Report Type: 
  Country: None (occurrence: None)
  Receive Date: 20110823
  Receipt Date: 20110818
  Transmission Date: 20111222
  Serious: Yes (Other)
  Sender: FDA-Public Use
  Company Number: PHHY2010AU58187

PATIENT
  Sex: Female

DRUGS (2)
  1. TASIGNA [Suspect]
     Indication: CHRONIC MYELOID LEUKAEMIA
     Dosage: UNK
     Route: 048
     Dates: start: 20110101
  2. IMATINIB MESYLATE [Suspect]
     Indication: CHRONIC MYELOID LEUKAEMIA
     Dosage: 400 MG, UNK
     Route: 048
     Dates: start: 20100802, end: 20110101

REACTIONS (10)
  - HYPOTENSION [None]
  - LIVER DISORDER [None]
  - ANAEMIA [None]
  - WEIGHT INCREASED [None]
  - SUICIDAL BEHAVIOUR [None]
  - FATIGUE [None]
  - DIARRHOEA [None]
  - FLUID RETENTION [None]
  - VOMITING [None]
  - NAUSEA [None]
